FAERS Safety Report 16120323 (Version 3)
Quarter: 2019Q2

REPORT INFORMATION
  Report Type: Spontaneous
  Country: JP (occurrence: JP)
  Receive Date: 20190326
  Receipt Date: 20190620
  Transmission Date: 20190711
  Serious: Yes (Death, Hospitalization, Other)
  Sender: FDA-Public Use
  Company Number: JP-MYLANLABS-2019M1024578

PATIENT
  Age: 56 Year
  Sex: Female

DRUGS (14)
  1. PREDNISOLONE. [Suspect]
     Active Substance: PREDNISOLONE
     Dosage: 5 MILLIGRAM
     Route: 065
     Dates: start: 20171206
  2. LANSOPRAZOLE. [Concomitant]
     Active Substance: LANSOPRAZOLE
     Indication: GASTROOESOPHAGEAL REFLUX DISEASE
     Route: 048
  3. RHEUMATREX [Concomitant]
     Active Substance: METHOTREXATE SODIUM
     Dosage: 8 MILLIGRAM, QW
     Route: 065
  4. REBAMIPIDE [Concomitant]
     Active Substance: REBAMIPIDE
     Dosage: UNK
     Route: 048
     Dates: start: 20171213, end: 20171226
  5. CALONAL [Concomitant]
     Active Substance: ACETAMINOPHEN
     Indication: PRODUCT USED FOR UNKNOWN INDICATION
     Dosage: UNK
     Route: 048
     Dates: start: 20171212, end: 20171224
  6. DICLOFENAC [Concomitant]
     Active Substance: DICLOFENAC
     Indication: PRODUCT USED FOR UNKNOWN INDICATION
     Dosage: UNK
     Route: 048
     Dates: start: 20171225, end: 20171225
  7. VANCOMYCIN [Suspect]
     Active Substance: VANCOMYCIN
     Indication: OSTEOMYELITIS
     Dosage: UNK
     Route: 065
  8. TEICOPLANIN [Suspect]
     Active Substance: TEICOPLANIN
     Indication: OSTEOMYELITIS
     Dosage: UNK
     Route: 065
  9. REBAMIPIDE [Concomitant]
     Active Substance: REBAMIPIDE
     Indication: PRODUCT USED FOR UNKNOWN INDICATION
     Dosage: UNK
     Route: 048
     Dates: start: 20170801, end: 20171101
  10. REBAMIPIDE [Concomitant]
     Active Substance: REBAMIPIDE
     Dosage: UNK
     Route: 048
     Dates: start: 20171121, end: 20171202
  11. CELECOXIB. [Concomitant]
     Active Substance: CELECOXIB
     Indication: PRODUCT USED FOR UNKNOWN INDICATION
     Dosage: UNK
     Route: 048
     Dates: start: 20171121, end: 20171202
  12. PREDNISOLONE. [Suspect]
     Active Substance: PREDNISOLONE
     Indication: RHEUMATOID ARTHRITIS
     Dosage: 3 MILLIGRAM
     Route: 065
  13. TOFACITINIB CITRATE [Suspect]
     Active Substance: TOFACITINIB CITRATE
     Indication: RHEUMATOID ARTHRITIS
     Route: 065
  14. RHEUMATREX [Concomitant]
     Active Substance: METHOTREXATE SODIUM
     Indication: RHEUMATOID ARTHRITIS
     Dosage: 4 MILLIGRAM, QW
     Route: 065

REACTIONS (19)
  - Urinary tract infection [Recovered/Resolved]
  - Blood pressure decreased [Unknown]
  - Osteomyelitis [Recovering/Resolving]
  - Supraventricular extrasystoles [Recovering/Resolving]
  - Palpitations [Unknown]
  - Splenomegaly [Unknown]
  - Herpes zoster [Recovering/Resolving]
  - Thrombocytopenia [Recovered/Resolved]
  - Dizziness [Unknown]
  - C-reactive protein increased [Unknown]
  - Hepatic function abnormal [Recovering/Resolving]
  - Laryngeal oedema [Unknown]
  - Lymphoma [Fatal]
  - Hypersensitivity [Unknown]
  - Aplasia pure red cell [Recovered/Resolved]
  - Pancytopenia [Unknown]
  - General physical health deterioration [Unknown]
  - Lymphadenopathy [Unknown]
  - Adrenal insufficiency [Unknown]

NARRATIVE: CASE EVENT DATE: 20160829
